FAERS Safety Report 6912731-X (Version None)
Quarter: 2010Q3

REPORT INFORMATION
  Report Type: 
  Country: None (occurrence: None)
  Receive Date: 20100806
  Receipt Date: 20081009
  Transmission Date: 20110219
  Serious: Yes (Other)
  Sender: FDA-Public Use
  Company Number: US-PFIZER INC-2008085150

PATIENT

DRUGS (1)
  1. VFEND [Suspect]
     Dates: start: 20081007

REACTIONS (1)
  - HALLUCINATION, VISUAL [None]
